FAERS Safety Report 7226229-5 (Version None)
Quarter: 2011Q1

REPORT INFORMATION
  Report Type: 
  Country: None (occurrence: None)
  Receive Date: 20110114
  Receipt Date: 20110104
  Transmission Date: 20110831
  Serious: Yes (Hospitalization, Other)
  Sender: FDA-Public Use
  Company Number: PHHY2011CN01119

PATIENT
  Age: 10 Year
  Sex: Male

DRUGS (1)
  1. OXCARBAZEPINE [Suspect]
     Indication: EPILEPSY
     Dosage: 500 MG, BID
     Route: 048

REACTIONS (13)
  - LYMPHADENOPATHY [None]
  - PHARYNGEAL ERYTHEMA [None]
  - PETECHIAE [None]
  - PYREXIA [None]
  - RENAL DISORDER [None]
  - TONSILLAR INFLAMMATION [None]
  - BLOOD UREA INCREASED [None]
  - BONE MARROW FAILURE [None]
  - HYPOKALAEMIA [None]
  - LEUKOPENIA [None]
  - THROMBOCYTOPENIC PURPURA [None]
  - PLATELET COUNT DECREASED [None]
  - RED BLOOD CELLS URINE POSITIVE [None]
